FAERS Safety Report 5080288-7 (Version None)
Quarter: 2006Q3

REPORT INFORMATION
  Report Type: 
  Country: None (occurrence: None)
  Receive Date: 20060815
  Receipt Date: 20060807
  Transmission Date: 20061208
  Serious: Yes (Other)
  Sender: FDA-Public Use
  Company Number: US-JNJFOC-20060802182

PATIENT
  Sex: Male

DRUGS (4)
  1. REMICADE [Suspect]
     Indication: CROHN'S DISEASE
     Dosage: STARTED IN JANUARY OR FEBRUARY
     Route: 042
  2. 6MP [Concomitant]
  3. MESALAMINE [Concomitant]
  4. STEROIDS [Concomitant]

REACTIONS (1)
  - TUBERCULOSIS [None]
